FAERS Safety Report 5885165-7 (Version None)
Quarter: 2008Q3

REPORT INFORMATION
  Report Type: 
  Country: None (occurrence: None)
  Receive Date: 20080916
  Receipt Date: 20080915
  Transmission Date: 20090109
  Serious: Yes (Death, Hospitalization)
  Sender: FDA-Public Use
  Company Number: SE-RB-003565-08

PATIENT
  Age: 25 Year
  Sex: Male

DRUGS (1)
  1. SUBUTEX [Suspect]
     Indication: DRUG USE FOR UNKNOWN INDICATION
     Dosage: DOSING INFORMATION UNKNOWN.
     Route: 065

REACTIONS (5)
  - AGGRESSION [None]
  - ANOXIC ENCEPHALOPATHY [None]
  - ANXIETY [None]
  - LOSS OF CONSCIOUSNESS [None]
  - SUBSTANCE ABUSE [None]
